FAERS Safety Report 18480452 (Version 1)
Quarter: 2020Q4

REPORT INFORMATION
  Report Type: Spontaneous
  Country: US (occurrence: US)
  Receive Date: 20201109
  Receipt Date: 20201109
  Transmission Date: 20210114
  Serious: Yes (Death, Hospitalization)
  Sender: FDA-Public Use
  Company Number: None

PATIENT
  Sex: Female
  Weight: 42.5 kg

DRUGS (1)
  1. TOPOTECAN [Suspect]
     Active Substance: TOPOTECAN HYDROCHLORIDE
     Dates: end: 20200710

REACTIONS (18)
  - Anaemia [None]
  - Disease progression [None]
  - Leukopenia [None]
  - White blood cell count decreased [None]
  - Vasogenic cerebral oedema [None]
  - Bacterial infection [None]
  - Hospice care [None]
  - Tachycardia [None]
  - Neutropenia [None]
  - Dyspnoea [None]
  - Asthenia [None]
  - Pleural effusion [None]
  - Orthopnoea [None]
  - Lymphopenia [None]
  - Productive cough [None]
  - Rhonchi [None]
  - Dysarthria [None]
  - Heart rate increased [None]

NARRATIVE: CASE EVENT DATE: 20200713
